FAERS Safety Report 13680885 (Version 2)
Quarter: 2017Q3

REPORT INFORMATION
  Report Type: Report from Study
  Country: None (occurrence: AT)
  Receive Date: 20170623
  Receipt Date: 20170708
  Transmission Date: 20171127
  Serious: Yes (Hospitalization)
  Sender: FDA-Public Use
  Company Number: AT-ABBVIE-17K-009-2015900-00

PATIENT
  Sex: Female

DRUGS (2)
  1. SERACTIL FORTE [Concomitant]
     Indication: PRODUCT USED FOR UNKNOWN INDICATION
  2. HUMIRA [Suspect]
     Active Substance: ADALIMUMAB
     Indication: ANKYLOSING SPONDYLITIS
     Route: 058
     Dates: start: 201102, end: 201703

REACTIONS (2)
  - Joint dislocation [Not Recovered/Not Resolved]
  - Impaired healing [Not Recovered/Not Resolved]
